FAERS Safety Report 14348722 (Version 1)
Quarter: 2018Q1

REPORT INFORMATION
  Report Type: Spontaneous
  Country: PL (occurrence: PL)
  Receive Date: 20180104
  Receipt Date: 20180104
  Transmission Date: 20180509
  Serious: Yes (Other)
  Sender: FDA-Public Use
  Company Number: PL-AMGEN-POLSP2017191564

PATIENT
  Age: 26 Year
  Sex: Male

DRUGS (8)
  1. HOLOXAN [Concomitant]
     Active Substance: IFOSFAMIDE
     Indication: BONE GIANT CELL TUMOUR
     Dosage: 5000 UNK, UNK
     Route: 065
  2. CISPLATIN. [Concomitant]
     Active Substance: CISPLATIN
     Indication: BONE GIANT CELL TUMOUR
  3. XGEVA [Suspect]
     Active Substance: DENOSUMAB
     Indication: METASTASES TO LUNG
     Dosage: UNK
     Route: 065
  4. DOXORUBICIN [Concomitant]
     Active Substance: DOXORUBICIN
     Indication: BONE GIANT CELL TUMOUR
     Dosage: UNK
  5. DOXORUBICIN [Concomitant]
     Active Substance: DOXORUBICIN
     Indication: METASTASES TO LUNG
  6. CISPLATIN. [Concomitant]
     Active Substance: CISPLATIN
     Indication: METASTASES TO LUNG
     Dosage: UNK
  7. XGEVA [Suspect]
     Active Substance: DENOSUMAB
     Indication: BONE GIANT CELL TUMOUR
  8. HOLOXAN [Concomitant]
     Active Substance: IFOSFAMIDE
     Indication: METASTASES TO LUNG

REACTIONS (2)
  - Cerebral ischaemia [Unknown]
  - Malignant neoplasm progression [Unknown]
